FAERS Safety Report 16681590 (Version 1)
Quarter: 2019Q3

REPORT INFORMATION
  Report Type: Spontaneous
  Country: US (occurrence: US)
  Receive Date: 20190808
  Receipt Date: 20190808
  Transmission Date: 20191004
  Serious: No
  Sender: FDA-Public Use
  Company Number: US-ASTRAZENECA-2019SF01050

PATIENT
  Sex: Male
  Weight: 97.1 kg

DRUGS (16)
  1. BYDUREON [Suspect]
     Active Substance: EXENATIDE
     Indication: TYPE 2 DIABETES MELLITUS
     Dosage: BYDUREON 2 MG PEN ONCE PER WEEK
     Route: 058
     Dates: start: 201810
  2. VALSARTAN. [Concomitant]
     Active Substance: VALSARTAN
     Indication: BLOOD PRESSURE MEASUREMENT
     Route: 048
  3. BYDUREON [Suspect]
     Active Substance: EXENATIDE
     Indication: TYPE 2 DIABETES MELLITUS
     Dosage: BYDUREON 2 MG PEN ONCE PER WEEK
     Route: 058
     Dates: start: 201810, end: 201904
  4. COENZYME Q10 [Concomitant]
     Active Substance: UBIDECARENONE
     Route: 048
  5. GABAPENTIN. [Concomitant]
     Active Substance: GABAPENTIN
  6. PRAVASTATIN. [Concomitant]
     Active Substance: PRAVASTATIN
     Indication: BLOOD CHOLESTEROL
     Route: 048
  7. BUPROPION. [Concomitant]
     Active Substance: BUPROPION
     Indication: NASAL CONGESTION
     Dosage: BUPROPION BROMIDE TWICE DAY
  8. SIMETHICONE (DIMETHICONE) [Concomitant]
     Active Substance: DIMETHICONE
     Dosage: SIMETHICONE PRN AT BED 125 MG
     Route: 048
  9. FLORASTOR [Concomitant]
     Active Substance: SACCHAROMYCES CEREVISIAE
     Route: 048
  10. VIT D3 1000 IU [Concomitant]
  11. TRESIBA [Concomitant]
     Active Substance: INSULIN DEGLUDEC
     Indication: TYPE 2 DIABETES MELLITUS
     Dosage: TRESIBA 20 IU BY SQ INJECTION ONCE PER DAY
     Route: 058
  12. METFORMIN [Concomitant]
     Active Substance: METFORMIN HYDROCHLORIDE
     Indication: DIABETES MELLITUS
     Route: 048
  13. ELIQUIS [Concomitant]
     Active Substance: APIXABAN
     Indication: THROMBOSIS
     Route: 048
  14. PANTOPRAZOLE [Concomitant]
     Active Substance: PANTOPRAZOLE
     Indication: GASTRIC DISORDER
     Route: 048
  15. GLIMEPIRIDE. [Concomitant]
     Active Substance: GLIMEPIRIDE
  16. DETROL [Concomitant]
     Active Substance: TOLTERODINE TARTRATE

REACTIONS (2)
  - Weight fluctuation [Unknown]
  - Body height decreased [Unknown]
